FAERS Safety Report 23801591 (Version 2)
Quarter: 2024Q2

REPORT INFORMATION
  Report Type: Report from Study
  Country: US (occurrence: US)
  Receive Date: 20240430
  Receipt Date: 20240503
  Transmission Date: 20240716
  Serious: Yes (Death)
  Sender: FDA-Public Use
  Company Number: US-ABBVIE-5739537

PATIENT
  Age: 84 Year
  Sex: Male

DRUGS (13)
  1. VENCLEXTA [Suspect]
     Active Substance: VENETOCLAX
     Indication: Acute myeloid leukaemia
     Dosage: FORM STRENGTH: 100 MILLIGRAM
     Route: 048
     Dates: start: 20230720
  2. ACETAMINOPHEN [Concomitant]
     Active Substance: ACETAMINOPHEN
     Indication: Product used for unknown indication
     Dosage: FORM STRENGTH: 325 MG?TAKE BY MOUTH EVERY 4 HOURS AS NEEDED.
     Route: 048
  3. ACYCLOVIR [Concomitant]
     Active Substance: ACYCLOVIR
     Indication: Product used for unknown indication
     Dosage: TAKE 1 TABLET (800 MG TOTAL) BY MOUTH DAILY FOR 90 DAYS
     Route: 048
  4. ALENDRONATE [Concomitant]
     Active Substance: ALENDRONATE SODIUM
     Indication: Product used for unknown indication
     Dosage: FORM STRENGTH: 70 MG,?TAKE 1 TABLET ONCE A WEEK IN MORNING W/ WATER ON EMPTY? STOMACH. NOTHING EL...
     Route: 048
  5. AMLODIPINE [Concomitant]
     Active Substance: AMLODIPINE BESYLATE
     Indication: Product used for unknown indication
     Dosage: FORM STRENGTH: 10 MG,?TAKE 1 TABLET (10 MG TOTAL) BY MOUTH ONCE DAILY
     Route: 048
  6. ASPIRIN [Concomitant]
     Active Substance: ASPIRIN
     Indication: Product used for unknown indication
     Route: 048
     Dates: start: 20090720
  7. BACLOFEN [Concomitant]
     Active Substance: BACLOFEN
     Indication: Hiccups
     Dosage: TIME INTERVAL: 0.33333333 DAYS: FORM STRENGTH: 5 MG,?TAKE 5-10 MG THREE TIMES PER DAY PRN
     Route: 048
  8. LEVOFLOXACIN [Concomitant]
     Active Substance: LEVOFLOXACIN
     Indication: Infection prophylaxis
     Dosage: FORM STRENGTH: 250 MG,?TAKE 1 TABLET IS (250 MG TOTAL) BY MOUTH NIGHTLY FOR 30 DAYS. TAKE 1 TABLE...
     Route: 048
  9. LOSARTAN [Concomitant]
     Active Substance: LOSARTAN
     Indication: Product used for unknown indication
     Dosage: FORM STRENGTH: 50 MG,?1.5 TABLETS (75 MG TOTAL) BY MOUTH DAILY.
     Route: 048
  10. POSACONAZOLE [Concomitant]
     Active Substance: POSACONAZOLE
     Indication: Product used for unknown indication
     Dosage: FORM STRENGTH: 100 MG
     Route: 048
  11. PROCHLORPERAZINE [Concomitant]
     Active Substance: PROCHLORPERAZINE
     Indication: Product used for unknown indication
     Dosage: FORM STRENGTH: 5 MG?TAKE BY MOUTH EVERY 6 HOURS AS NEEDED
     Route: 048
  12. ROSUVASTATIN [Concomitant]
     Active Substance: ROSUVASTATIN
     Indication: Product used for unknown indication
     Dosage: FORM STRENGTH: 40 MG,?TAKE 1 TABLET (40 MG TOTAL) BY MOUTH ONCE DAILY
     Route: 048
  13. DOCUSATE SODIUM\SENNOSIDES [Concomitant]
     Active Substance: DOCUSATE SODIUM\SENNOSIDES
     Indication: Product used for unknown indication
     Dosage: 8.6- 50 MG TABLET,?TAKE BY MOUTH EVERY 12 HOURS AS NEEDED.
     Route: 048

REACTIONS (1)
  - Death [Fatal]

NARRATIVE: CASE EVENT DATE: 20240227
